FAERS Safety Report 9031074 (Version 1)
Quarter: 2013Q1

REPORT INFORMATION
  Report Type: Report from Study
  Country: US (occurrence: US)
  Receive Date: 20130123
  Receipt Date: 20130123
  Transmission Date: 20140127
  Serious: Yes (Hospitalization)
  Sender: FDA-Public Use
  Company Number: US-PFIZER INC-2013016737

PATIENT
  Sex: Male

DRUGS (17)
  1. ALPRAZOLAM [Suspect]
     Indication: SLEEP DISORDER
     Dosage: 0.25 MG, DAILY
     Route: 048
  2. OXYCODONE HYDROCHLORIDE [Suspect]
     Indication: PAIN
     Dosage: 1 DF (5-10MG), EVERY 4 HRS AS NEEDED
     Route: 048
  3. BISOPROLOL FUMARATE [Suspect]
     Dosage: 1 DF (10/6.25MG), DAILY
     Route: 048
  4. DASATINIB [Suspect]
     Indication: PROSTATE CANCER
     Dosage: 70 MG, DAILY
     Route: 048
     Dates: start: 20120105
  5. ABIRATERONE ACETATE [Suspect]
     Indication: PROSTATE CANCER
     Dosage: 1000 MG, DAILY
     Route: 048
     Dates: start: 20110915
  6. DEGARELIX ACETATE [Suspect]
     Dosage: 80 MG, MONTHLY
     Route: 058
  7. ZOMETA [Suspect]
     Dosage: 4 MG, EVERY 3 MONTHS
     Route: 042
  8. KLOR-CON [Suspect]
     Dosage: 20 MEQ, DAILY
     Route: 048
  9. TESSALON PERLE [Suspect]
     Dosage: 100 MG (1-2 CAPSULES EVERY 8 HRS), AS NECESSARY
     Route: 048
  10. CLARITIN [Suspect]
     Dosage: 10 MG
     Route: 048
  11. ASPIRIN [Suspect]
     Dosage: 81 MG, DAILY
     Route: 048
  12. CARAFATE [Concomitant]
  13. FIRMAGON [Concomitant]
     Dosage: UNK
     Dates: end: 20120920
  14. METOPROLOL [Concomitant]
  15. METOPROLOL TARTRATE [Concomitant]
  16. PREDNISONE [Concomitant]
  17. REGLAN [Concomitant]

REACTIONS (2)
  - Pain [Unknown]
  - Renal failure acute [Unknown]
